FAERS Safety Report 5930207-3 (Version None)
Quarter: 2008Q4

REPORT INFORMATION
  Report Type: 
  Country: None (occurrence: None)
  Receive Date: 20081024
  Receipt Date: 20081016
  Transmission Date: 20090506
  Serious: Yes (Other)
  Sender: FDA-Public Use
  Company Number: JP-PFIZER INC-2008087703

PATIENT

DRUGS (2)
  1. AZULFIDINE [Suspect]
     Route: 048
  2. RIMATIL [Concomitant]
     Route: 048

REACTIONS (2)
  - LEUKAEMIA [None]
  - MYELODYSPLASTIC SYNDROME [None]
